FAERS Safety Report 7732547-4 (Version None)
Quarter: 2011Q3

REPORT INFORMATION
  Report Type: 
  Country: None (occurrence: None)
  Receive Date: 20110906
  Receipt Date: 20110825
  Transmission Date: 20111222
  Serious: Yes (Hospitalization, Other)
  Sender: FDA-Public Use
  Company Number: US-ASTRAZENECA-2011SE03909

PATIENT
  Age: 58 Year
  Sex: Female

DRUGS (1)
  1. TOPROL-XL [Suspect]
     Route: 048

REACTIONS (4)
  - NAUSEA [None]
  - BLOOD CHOLESTEROL ABNORMAL [None]
  - AORTIC ANEURYSM [None]
  - WRONG TECHNIQUE IN DRUG USAGE PROCESS [None]
